FAERS Safety Report 18276624 (Version 1)
Quarter: 2020Q3

REPORT INFORMATION
  Report Type: Spontaneous
  Country: US (occurrence: US)
  Receive Date: 20200917
  Receipt Date: 20200917
  Transmission Date: 20201103
  Serious: No
  Sender: FDA-Public Use
  Company Number: US-HIKMA PHARMACEUTICALS USA INC.-US-H14001-20-03210

PATIENT
  Age: 60 Year
  Sex: Male

DRUGS (3)
  1. AMOXICILIN AND CLAVULANIC ACID [Concomitant]
     Route: 048
  2. PROPANTHELINE [Suspect]
     Active Substance: PROPANTHELINE
     Indication: SALIVARY HYPERSECRETION
     Route: 048
  3. AMOXICILIN AND CLAVULANIC ACID [Concomitant]
     Dosage: 500 MG/120 MG
     Route: 048

REACTIONS (1)
  - Ageusia [Not Recovered/Not Resolved]
